FAERS Safety Report 21207855 (Version 5)
Quarter: 2023Q2

REPORT INFORMATION
  Report Type: Spontaneous
  Country: US (occurrence: US)
  Receive Date: 20220812
  Receipt Date: 20230621
  Transmission Date: 20230721
  Serious: No
  Sender: FDA-Public Use
  Company Number: US-PFIZER INC-2020358340

PATIENT
  Age: 62 Year
  Sex: Female

DRUGS (2)
  1. IBRANCE [Suspect]
     Active Substance: PALBOCICLIB
     Indication: Metastases to breast
     Dosage: 75 MG, 1X/DAY (TAKE ONE TABLET BY MOUTH DAILY WITH FOOD)
     Route: 048
  2. IBRANCE [Suspect]
     Active Substance: PALBOCICLIB
     Indication: Breast cancer female
     Dosage: 75 MG, CYCLIC (TAKE 1 TABLET BY MOUTH DAILY WITH FOOD FOR 21 DAYS ON THEN 7 DAYS OFF)
     Route: 048
     Dates: start: 20220812

REACTIONS (8)
  - Expired product administered [Unknown]
  - Fatigue [Unknown]
  - Dizziness [Unknown]
  - Nausea [Not Recovered/Not Resolved]
  - Decreased appetite [Not Recovered/Not Resolved]
  - Alopecia [Not Recovered/Not Resolved]
  - Insomnia [Unknown]
  - Depression [Recovering/Resolving]
